FAERS Safety Report 10047988 (Version 2)
Quarter: 2014Q1

REPORT INFORMATION
  Report Type: Spontaneous
  Country: US (occurrence: US)
  Receive Date: 20140331
  Receipt Date: 20140331
  Transmission Date: 20141002
  Serious: No
  Sender: FDA-Public Use
  Company Number: US-PFIZER INC-2014047370

PATIENT
  Age: 53 Year
  Sex: Female

DRUGS (31)
  1. SUTENT [Suspect]
     Indication: NEUROENDOCRINE TUMOUR
     Dosage: 37.5 MG, DAILY
     Dates: start: 20140213, end: 2014
  2. SUTENT [Suspect]
     Dosage: 25 MG, DAILY
     Dates: start: 201403
  3. METHYLPHENIDATE [Concomitant]
     Dosage: UNK
  4. PRO-AIR [Concomitant]
     Dosage: UNK
  5. CHOLESTYRAMINE [Concomitant]
     Dosage: UNK
  6. OLANZAPINE [Concomitant]
     Dosage: UNK
  7. OXYCODONE [Concomitant]
     Dosage: UNK
  8. OXYCONTIN [Concomitant]
     Dosage: UNK
  9. VITAMIN E [Concomitant]
     Dosage: UNK
  10. VITAMIN C [Concomitant]
     Dosage: UNK
  11. VITAMIN D [Concomitant]
     Dosage: UNK
  12. VITAMIN B COMPLEX [Concomitant]
     Dosage: UNK
  13. VITAMIN B6 [Concomitant]
     Dosage: UNK
  14. CARAFATE [Concomitant]
     Dosage: UNK
  15. CREON [Concomitant]
     Dosage: UNK
  16. SANDOSTATIN [Concomitant]
     Dosage: UNK
  17. PROBIOTICS [Concomitant]
     Dosage: UNK
  18. PROTONIX [Concomitant]
     Dosage: UNK
  19. NASONEX [Concomitant]
     Dosage: UNK
  20. ADVAIR DISKUS [Concomitant]
     Dosage: UNK
  21. MIRALAX [Concomitant]
     Dosage: UNK
  22. IMODIUM [Concomitant]
     Dosage: UNK
  23. LOMOTIL [Concomitant]
     Dosage: UNK
  24. FISH OIL [Concomitant]
     Dosage: UNK
  25. MELATONIN [Concomitant]
     Dosage: UNK
  26. BENADRYL [Concomitant]
     Dosage: UNK
  27. GABAPENTIN [Concomitant]
     Dosage: UNK
  28. LORAZEPAM [Concomitant]
     Dosage: UNK
  29. LEVOTHYROXINE [Concomitant]
     Dosage: UNK
  30. MAGNESIUM OXIDE [Concomitant]
     Dosage: UNK
  31. CALCIUM W/MAGNESIUM [Concomitant]
     Dosage: UNK

REACTIONS (12)
  - Activities of daily living impaired [Unknown]
  - Tearfulness [Unknown]
  - Fatigue [Unknown]
  - Palmar-plantar erythrodysaesthesia syndrome [Unknown]
  - Gait disturbance [Unknown]
  - Pain [Unknown]
  - Abdominal distension [Unknown]
  - Local swelling [Unknown]
  - Joint swelling [Unknown]
  - Weight increased [Unknown]
  - Blood pressure increased [Unknown]
  - Pruritus [Unknown]
